FAERS Safety Report 24278754 (Version 1)
Quarter: 2024Q3

REPORT INFORMATION
  Report Type: Report from Study
  Country: US (occurrence: US)
  Receive Date: 20240903
  Receipt Date: 20240903
  Transmission Date: 20241016
  Serious: Yes (Other)
  Sender: PFIZER
  Company Number: US-PFIZER INC-202400106978

PATIENT
  Age: 36 Year
  Sex: Female

DRUGS (2)
  1. IBRANCE [Suspect]
     Active Substance: PALBOCICLIB
     Dosage: 125 MG, DAILY21 DAYS THEN OFF 7 DAYS
     Route: 048
     Dates: start: 20240511
  2. IBRANCE [Suspect]
     Active Substance: PALBOCICLIB
     Dosage: 125 MG, DAILY, 21 DAYS THEN OFF 7 DAYS
     Route: 048
     Dates: start: 20240511

REACTIONS (3)
  - Neuropathy peripheral [Recovering/Resolving]
  - Diarrhoea [Unknown]
  - Product dose omission issue [Recovered/Resolved]
